FAERS Safety Report 14699728 (Version 3)
Quarter: 2018Q2

REPORT INFORMATION
  Report Type: Spontaneous
  Country: JP (occurrence: JP)
  Receive Date: 20180330
  Receipt Date: 20180629
  Transmission Date: 20180711
  Serious: Yes (Hospitalization, Other)
  Sender: FDA-Public Use
  Company Number: JP-OTSUKA-2018_007812

PATIENT
  Age: 69 Year
  Sex: Female

DRUGS (2)
  1. SAMSCA [Suspect]
     Active Substance: TOLVAPTAN
     Indication: DIABETIC NEPHROPATHY
  2. SAMSCA [Suspect]
     Active Substance: TOLVAPTAN
     Indication: FLUID IMBALANCE
     Dosage: 15 MG, DAILY DOSE (DEVIDE INTO 2 DOSES)
     Route: 048
     Dates: start: 20161107, end: 20180306

REACTIONS (3)
  - Drug-induced liver injury [Recovered/Resolved]
  - Hepatic function abnormal [Recovered/Resolved]
  - Product use in unapproved indication [Unknown]

NARRATIVE: CASE EVENT DATE: 20180306
